FAERS Safety Report 6215469-X (Version None)
Quarter: 2009Q2

REPORT INFORMATION
  Report Type: 
  Country: None (occurrence: None)
  Receive Date: 20090603
  Receipt Date: 20090518
  Transmission Date: 20091009
  Serious: Yes (Hospitalization)
  Sender: FDA-Public Use
  Company Number: APP200900285

PATIENT
  Age: 62 Year
  Sex: Female

DRUGS (5)
  1. FLUOROURACIL INJ [Suspect]
     Indication: RECTAL CANCER
     Dosage: 750 MG, 1 IN 1 WK, INTRAVENOUS BOLUS
     Route: 042
     Dates: start: 20030604, end: 20030604
  2. FLUOROURACIL INJ [Suspect]
     Indication: RECTAL CANCER
     Dosage: 750 MG, 1 IN 1 WK, INTRAVENOUS BOLUS
     Route: 042
     Dates: start: 20030311
  3. LEVOFOLINATE CALCIUM      (CALCIUM LEVOFOLINATE) [Suspect]
     Indication: RECTAL CANCER
     Dosage: 375 MG, 1 IN 1 WK, INTRAVENOUS DRIP
     Route: 042
     Dates: start: 20030604, end: 20030604
  4. LEVOFOLINATE CALCIUM      (CALCIUM LEVOFOLINATE) [Suspect]
     Indication: RECTAL CANCER
     Dosage: 375 MG, 1 IN 1 WK, INTRAVENOUS DRIP
     Route: 042
     Dates: start: 20030311
  5. ACETYLCHOLINE        (ACETYLCHOLINE) [Concomitant]

REACTIONS (9)
  - ALTERED STATE OF CONSCIOUSNESS [None]
  - ARTERIOSPASM CORONARY [None]
  - BLOOD PRESSURE INCREASED [None]
  - CARDIAC FAILURE CONGESTIVE [None]
  - ELECTROCARDIOGRAM QT PROLONGED [None]
  - HEART RATE INCREASED [None]
  - PULMONARY CONGESTION [None]
  - RESPIRATORY RATE INCREASED [None]
  - STRESS CARDIOMYOPATHY [None]
